FAERS Safety Report 9184557 (Version 1)
Quarter: 2012Q4

REPORT INFORMATION
  Report Type: 
  Country: US (occurrence: US)
  Receive Date: 20121031
  Receipt Date: 20121031
  Transmission Date: 20130627
  Serious: Yes (Hospitalization, Other)
  Sender: FDA-Public Use
  Company Number: US-JNJFOC-20121013686

PATIENT
  Sex: Male

DRUGS (3)
  1. REOPRO [Suspect]
     Indication: PRODUCT USED FOR UNKNOWN INDICATION
     Dosage: 10 mg/ 5 ml
     Route: 065
  2. EFFIENT [Suspect]
     Indication: STENT PLACEMENT
     Route: 065
  3. EFFIENT [Suspect]
     Indication: STENT PLACEMENT
     Route: 065

REACTIONS (3)
  - Venous occlusion [Unknown]
  - Epistaxis [Unknown]
  - Platelet count decreased [Recovered/Resolved]
